FAERS Safety Report 17375301 (Version 4)
Quarter: 2020Q1

REPORT INFORMATION
  Report Type: Spontaneous
  Country: IT (occurrence: IT)
  Receive Date: 20200205
  Receipt Date: 20200226
  Transmission Date: 20200409
  Serious: Yes (Life-Threatening, Hospitalization, Other)
  Sender: FDA-Public Use
  Company Number: IT-MYLANLABS-2020M1012741

PATIENT
  Age: 59 Year
  Sex: Male

DRUGS (11)
  1. FLUDARABINE [Suspect]
     Active Substance: FLUDARABINE PHOSPHATE
     Indication: ALLOGENIC STEM CELL TRANSPLANTATION
     Dosage: 80 MILLIGRAM, QD (80 MG DAILY ON DAY-3)
     Route: 065
     Dates: start: 201803
  2. FLUDARABINE [Suspect]
     Active Substance: FLUDARABINE PHOSPHATE
     Indication: ANTIFUNGAL PROPHYLAXIS
  3. METHOTREXATE. [Suspect]
     Active Substance: METHOTREXATE
     Dosage: 30 MILLIGRAM, QD, (30 MG DAY +1 THEN 20 MG DAYS +3 AND +6)
     Dates: start: 201803
  4. THIOTEPA. [Suspect]
     Active Substance: THIOTEPA
     Indication: ALLOGENIC STEM CELL TRANSPLANTATION
     Dosage: 390 MILLIGRAM, QD (390 MG ON DAY -6)
     Route: 065
  5. MICAFUNGIN. [Concomitant]
     Active Substance: MICAFUNGIN SODIUM
     Indication: ANTIFUNGAL PROPHYLAXIS
     Dosage: UNK
  6. METHOTREXATE. [Suspect]
     Active Substance: METHOTREXATE
     Indication: PROPHYLAXIS AGAINST GRAFT VERSUS HOST DISEASE
     Dosage: 30 MG DAY +1 THEN 20 MG DAYS +3 AND +6
     Route: 065
     Dates: start: 201803
  7. METHOTREXATE. [Suspect]
     Active Substance: METHOTREXATE
     Dosage: 20 MILLIGRAM, QD 20 MG DAYS +3 AND +6)
     Dates: start: 201803
  8. BUSULFAN. [Suspect]
     Active Substance: BUSULFAN
     Indication: ALLOGENIC STEM CELL TRANSPLANTATION
     Dosage: 240 MILLIGRAM, QD (240 MG DAILY ON DAYS -5 AND -4)
     Route: 065
  9. CICLOSPORIN [Suspect]
     Active Substance: CYCLOSPORINE
     Indication: PROPHYLAXIS AGAINST GRAFT VERSUS HOST DISEASE
     Dosage: 3 MG/KG CONTINUOUS INFUSION FROM DAY -1
     Route: 042
     Dates: start: 201803, end: 201804
  10. MICAFUNGIN. [Concomitant]
     Active Substance: MICAFUNGIN SODIUM
     Dosage: UNK
     Dates: start: 201803
  11. ANTITHYMOCYTE IMMUNOGLOBULIN (RABBIT) [Suspect]
     Active Substance: LAPINE T-LYMPHOCYTE IMMUNE GLOBULIN
     Indication: PROPHYLAXIS AGAINST GRAFT VERSUS HOST DISEASE
     Dosage: 2.5 MG/KG DAYS -3, -2, -1
     Route: 042

REACTIONS (15)
  - Brain abscess [Recovered/Resolved]
  - Vasogenic cerebral oedema [Recovered/Resolved]
  - Rhinocerebral mucormycosis [Recovered/Resolved]
  - Graft versus host disease in eye [Recovering/Resolving]
  - Graft versus host disease in gastrointestinal tract [Recovering/Resolving]
  - Sensory loss [Recovered/Resolved]
  - VIth nerve paralysis [Recovered/Resolved]
  - Sinusitis fungal [Recovered/Resolved]
  - Carotid artery thrombosis [Recovered/Resolved]
  - Graft versus host disease in skin [Recovering/Resolving]
  - Ophthalmic vein thrombosis [Recovered/Resolved]
  - Trigeminal neuralgia [Recovered/Resolved]
  - Weight decreased [Recovered/Resolved]
  - Cavernous sinus thrombosis [Recovered/Resolved]
  - Graft versus host disease in liver [Recovering/Resolving]

NARRATIVE: CASE EVENT DATE: 2018
